FAERS Safety Report 14684017 (Version 6)
Quarter: 2020Q4

REPORT INFORMATION
  Report Type: Report from Study
  Country: JP (occurrence: JP)
  Receive Date: 20180327
  Receipt Date: 20201204
  Transmission Date: 20210113
  Serious: Yes (Death, Hospitalization, Other)
  Sender: FDA-Public Use
  Company Number: JP-BAYER-2018-052987

PATIENT
  Age: 70 Year
  Sex: Female
  Weight: 43.2 kg

DRUGS (6)
  1. STIVARGA [Suspect]
     Active Substance: REGORAFENIB
     Indication: GASTROINTESTINAL STROMAL TUMOUR
     Dosage: DAILY DOSE 3DF, A 2-WEEK CONTINUOUS ADMINISTRATION PERIOD FOLLOWED BY A 1-WEEK INTERRUPTION PERIOD
     Route: 048
     Dates: start: 20180221, end: 20190604
  2. STIVARGA [Suspect]
     Active Substance: REGORAFENIB
     Indication: GASTROINTESTINAL STROMAL TUMOUR
     Dosage: DAILY DOSE 4 DF, A 3-WEEK CONTINUOUS ADMINISTRATION PERIOD FOLLOWED BY A 1-WEEK INTERRUPTION PERIOD
     Route: 048
     Dates: start: 20171204, end: 20171215
  3. STIVARGA [Suspect]
     Active Substance: REGORAFENIB
     Indication: GASTROINTESTINAL STROMAL TUMOUR
     Dosage: DAILY DOSE 3 DF, A 1-WEEK CONTINUOUS ADMINISTRATION PERIOD FOLLOWED BY A 1-WEEK INTERRUPTION PERIOD
     Route: 048
     Dates: start: 20180106, end: 20180112
  4. STIVARGA [Suspect]
     Active Substance: REGORAFENIB
     Indication: GASTROINTESTINAL STROMAL TUMOUR
     Dosage: DAILY DOSE 3 DF, A 2-WEEK CONTINUOUS ADMINISTRATION PERIOD FOLLOWED BY A 1-WEEK INTERRUPTION PERIOD
     Route: 048
     Dates: start: 20180120, end: 20180130
  5. STIVARGA [Suspect]
     Active Substance: REGORAFENIB
     Indication: GASTROINTESTINAL STROMAL TUMOUR
     Dosage: DAILY DOSE 3DF, A 2-WEEK CONTINUOUS ADMINISTRATION PERIOD FOLLOWED BY A 1-WEEK INTERRUPTION PERIOD
     Route: 048
     Dates: start: 20180210, end: 20180219
  6. PASTARON SOFT [Concomitant]
     Indication: DRUG TOXICITY PROPHYLAXIS
     Dosage: ADEQUATE DOSE
     Route: 061
     Dates: start: 20171214, end: 20180128

REACTIONS (15)
  - Malaise [Recovered/Resolved]
  - Palmar-plantar erythrodysaesthesia syndrome [Not Recovered/Not Resolved]
  - Malaise [Recovered/Resolved]
  - Alanine aminotransferase increased [Recovered/Resolved]
  - Hypertension [Not Recovered/Not Resolved]
  - Palmar-plantar erythrodysaesthesia syndrome [Not Recovered/Not Resolved]
  - Pyrexia [Recovered/Resolved]
  - Platelet count decreased [Recovered/Resolved]
  - Anaemia [Recovered/Resolved]
  - Gastrointestinal stromal tumour [Fatal]
  - Aspartate aminotransferase increased [Recovered/Resolved]
  - Hyperbilirubinaemia [Recovered/Resolved]
  - Rash [Recovered/Resolved]
  - Hyperphosphatasaemia [Recovered/Resolved]
  - Hypoalbuminaemia [Not Recovered/Not Resolved]

NARRATIVE: CASE EVENT DATE: 20171215
